FAERS Safety Report 5832224-0 (Version None)
Quarter: 2008Q3

REPORT INFORMATION
  Report Type: 
  Country: None (occurrence: None)
  Receive Date: 20080804
  Receipt Date: 20080725
  Transmission Date: 20090109
  Serious: Yes (Hospitalization, Other)
  Sender: FDA-Public Use
  Company Number: FR-BRISTOL-MYERS SQUIBB COMPANY-14282040

PATIENT
  Age: 59 Year
  Sex: Male

DRUGS (7)
  1. ERBITUX [Suspect]
     Indication: COLON CANCER
     Dosage: OCT 2006 RESTARTED
     Route: 042
     Dates: start: 20060901
  2. ENDOXAN [Suspect]
     Indication: COLON CANCER
     Dosage: OCT 2006 RESTARTED
     Route: 042
     Dates: start: 20060901, end: 20080201
  3. FLUOROURACIL [Suspect]
     Indication: COLON CANCER
     Route: 042
     Dates: start: 20040401, end: 20080201
  4. CAMPTOSAR [Suspect]
     Indication: COLON CANCER
     Route: 042
     Dates: start: 20050901, end: 20080301
  5. ELOXATIN [Suspect]
     Indication: COLON CANCER
     Route: 042
     Dates: start: 20040401, end: 20041001
  6. AVASTIN [Suspect]
     Indication: COLON CANCER
     Route: 042
     Dates: start: 20050901, end: 20060901
  7. FOLINIC ACID [Concomitant]
     Dates: end: 20060901

REACTIONS (5)
  - ABDOMINAL PAIN [None]
  - FOCAL NODULAR HYPERPLASIA [None]
  - MELAENA [None]
  - PORTAL HYPERTENSION [None]
  - VARICES OESOPHAGEAL [None]
